FAERS Safety Report 14264938 (Version 1)
Quarter: 2017Q4

REPORT INFORMATION
  Report Type: Report from Study
  Country: IN (occurrence: IN)
  Receive Date: 20171208
  Receipt Date: 20171208
  Transmission Date: 20180321
  Serious: Yes (Hospitalization, Other)
  Sender: FDA-Public Use
  Company Number: PHHY2017IN180555

PATIENT
  Age: 70 Year
  Sex: Female
  Weight: 50 kg

DRUGS (1)
  1. VYMADA [Suspect]
     Active Substance: SACUBITRIL\VALSARTAN
     Indication: CARDIAC FAILURE
     Dosage: 50 MG, BID
     Route: 048

REACTIONS (3)
  - Dry throat [Recovering/Resolving]
  - Nerve injury [Recovering/Resolving]
  - Chest pain [Recovered/Resolved]
